FAERS Safety Report 15942042 (Version 3)
Quarter: 2019Q2

REPORT INFORMATION
  Report Type: Spontaneous
  Country: US (occurrence: US)
  Receive Date: 20190209
  Receipt Date: 20190411
  Transmission Date: 20190711
  Serious: Yes (Other)
  Sender: FDA-Public Use
  Company Number: US-ASTRAZENECA-2018SF26121

PATIENT
  Age: 32475 Day
  Sex: Female
  Weight: 44.5 kg

DRUGS (28)
  1. PRAVASTATIN. [Concomitant]
     Active Substance: PRAVASTATIN
  2. NEXIUM [Suspect]
     Active Substance: ESOMEPRAZOLE MAGNESIUM
     Indication: GASTROOESOPHAGEAL REFLUX DISEASE
     Route: 048
     Dates: end: 2015
  3. NEXIUM [Suspect]
     Active Substance: ESOMEPRAZOLE MAGNESIUM
     Indication: GASTROOESOPHAGEAL REFLUX DISEASE
     Route: 065
     Dates: start: 20130713
  4. LEVOFLOXACIN. [Concomitant]
     Active Substance: LEVOFLOXACIN
  5. ALBUTEROL. [Concomitant]
     Active Substance: ALBUTEROL
  6. ARANESP [Concomitant]
     Active Substance: DARBEPOETIN ALFA
  7. NORTRIPTYLINE [Concomitant]
     Active Substance: NORTRIPTYLINE
  8. ECOTRIN [Concomitant]
     Active Substance: ASPIRIN
  9. ONDANSETRON [Concomitant]
     Active Substance: ONDANSETRON
  10. MULTIPLE VITAMIN [Concomitant]
     Active Substance: VITAMINS
  11. VITAMIN D3 [Concomitant]
     Active Substance: CHOLECALCIFEROL
  12. PROAIR HFA [Concomitant]
     Active Substance: ALBUTEROL SULFATE
  13. TRAMADOL. [Concomitant]
     Active Substance: TRAMADOL
  14. NEXIUM [Suspect]
     Active Substance: ESOMEPRAZOLE MAGNESIUM
     Indication: GASTROOESOPHAGEAL REFLUX DISEASE
     Route: 048
     Dates: start: 20130415, end: 20160731
  15. PREVACID [Suspect]
     Active Substance: LANSOPRAZOLE
     Route: 065
     Dates: start: 19760101, end: 20160630
  16. ZANTAC [Concomitant]
     Active Substance: RANITIDINE HYDROCHLORIDE
  17. LIDOCAINE. [Concomitant]
     Active Substance: LIDOCAINE
  18. CLONIDINE. [Concomitant]
     Active Substance: CLONIDINE
  19. CALCIUM [Concomitant]
     Active Substance: CALCIUM
  20. FAMOTIDINE. [Concomitant]
     Active Substance: FAMOTIDINE
  21. PREDNISONE. [Concomitant]
     Active Substance: PREDNISONE
  22. TAMOXIFEN [Concomitant]
     Active Substance: TAMOXIFEN
  23. METOPROLOL TARTRATE. [Concomitant]
     Active Substance: METOPROLOL TARTRATE
  24. NEXIUM [Suspect]
     Active Substance: ESOMEPRAZOLE MAGNESIUM
     Indication: GASTROOESOPHAGEAL REFLUX DISEASE
     Dosage: GENERIC
     Route: 065
     Dates: start: 20150428
  25. GABAPENTIN. [Concomitant]
     Active Substance: GABAPENTIN
  26. CHOLESTYRAMINE. [Concomitant]
     Active Substance: CHOLESTYRAMINE
  27. MUCINEX [Concomitant]
     Active Substance: GUAIFENESIN
  28. ACETAMINOPHEN-COD [Concomitant]
     Active Substance: ACETAMINOPHEN\CODEINE PHOSPHATE

REACTIONS (4)
  - Renal failure [Not Recovered/Not Resolved]
  - Nephrogenic anaemia [Unknown]
  - Chronic kidney disease [Not Recovered/Not Resolved]
  - Renal cancer [Unknown]

NARRATIVE: CASE EVENT DATE: 2015
